FAERS Safety Report 7181178-6 (Version None)
Quarter: 2010Q4

REPORT INFORMATION
  Report Type: 
  Country: None (occurrence: None)
  Receive Date: 20101221
  Receipt Date: 20101214
  Transmission Date: 20110411
  Serious: Yes (Hospitalization)
  Sender: FDA-Public Use
  Company Number: CL-PFIZER INC-2009278265

PATIENT
  Sex: Female

DRUGS (2)
  1. LYRICA [Suspect]
     Indication: GENERALISED ANXIETY DISORDER
     Dosage: UNK
     Dates: start: 20090401, end: 20090929
  2. FENOBARBITAL [Concomitant]
     Indication: EPILEPSY
     Dosage: UNK

REACTIONS (1)
  - ILEUS PARALYTIC [None]
